FAERS Safety Report 22232421 (Version 2)
Quarter: 2023Q2

REPORT INFORMATION
  Report Type: Spontaneous
  Country: US (occurrence: None)
  Receive Date: 20230420
  Receipt Date: 20230420
  Transmission Date: 20230722
  Serious: No
  Sender: FDA-Public Use
  Company Number: US-ROCHE-3107360

PATIENT
  Age: 78 Year
  Sex: Female

DRUGS (10)
  1. ESBRIET [Suspect]
     Active Substance: PIRFENIDONE
     Indication: Product used for unknown indication
     Dosage: MOST RECENT DOSE 267 MG.
     Route: 048
     Dates: start: 20220429
  2. BIOTIN [Concomitant]
     Active Substance: BIOTIN
     Route: 048
  3. CITRUCEL [Concomitant]
     Active Substance: METHYLCELLULOSE (4000 MPA.S)
  4. FISH OIL [Concomitant]
     Active Substance: FISH OIL
     Route: 048
  5. PRILOSEC [Concomitant]
     Active Substance: OMEPRAZOLE MAGNESIUM
     Route: 048
  6. TYLENOL [Concomitant]
     Active Substance: ACETAMINOPHEN
  7. MYRBETRIQ [Concomitant]
     Active Substance: MIRABEGRON
     Route: 048
  8. VITAMIN B12 [Concomitant]
     Active Substance: CYANOCOBALAMIN
     Route: 048
  9. ZETIA [Concomitant]
     Active Substance: EZETIMIBE
     Route: 048
  10. LOSARTAN POTASSIUM [Concomitant]
     Active Substance: LOSARTAN POTASSIUM
     Route: 048

REACTIONS (3)
  - Peripheral swelling [Not Recovered/Not Resolved]
  - Erythema [Not Recovered/Not Resolved]
  - Pain [Not Recovered/Not Resolved]

NARRATIVE: CASE EVENT DATE: 20220524
